FAERS Safety Report 21907617 (Version 2)
Quarter: 2023Q1

REPORT INFORMATION
  Report Type: Report from Study
  Country: US (occurrence: US)
  Receive Date: 20230125
  Receipt Date: 20230130
  Transmission Date: 20230417
  Serious: Yes (Other)
  Sender: FDA-Public Use
  Company Number: US-ABBVIE-21K-163-4148953-00

PATIENT
  Sex: Male
  Weight: 86 kg

DRUGS (20)
  1. HUMIRA [Suspect]
     Active Substance: ADALIMUMAB
     Indication: Psoriatic arthropathy
     Route: 058
     Dates: start: 201602
  2. HUMIRA [Suspect]
     Active Substance: ADALIMUMAB
  3. OXYCODONE [Concomitant]
     Active Substance: OXYCODONE
     Indication: Pain
  4. METHADONE HYDROCHLORIDE [Concomitant]
     Active Substance: METHADONE HYDROCHLORIDE
     Indication: Product used for unknown indication
  5. LACTULOSE [Concomitant]
     Active Substance: LACTULOSE
     Indication: Product used for unknown indication
  6. VITAMIN D3 [Concomitant]
     Active Substance: CHOLECALCIFEROL
     Indication: Product used for unknown indication
  7. CALCIUM [Concomitant]
     Active Substance: CALCIUM
     Indication: Product used for unknown indication
  8. OXYTOCIN [Concomitant]
     Active Substance: OXYTOCIN
     Indication: Product used for unknown indication
  9. CYMBALTA [Concomitant]
     Active Substance: DULOXETINE HYDROCHLORIDE
     Indication: Product used for unknown indication
  10. ARMOUR THYROID [Concomitant]
     Active Substance: THYROID, PORCINE
     Indication: Product used for unknown indication
  11. CELEBREX [Concomitant]
     Active Substance: CELECOXIB
     Indication: Product used for unknown indication
  12. PREVACID [Concomitant]
     Active Substance: LANSOPRAZOLE
     Indication: Product used for unknown indication
  13. VOLTAREN [Concomitant]
     Active Substance: DICLOFENAC SODIUM
     Indication: Product used for unknown indication
  14. GINKGO [Concomitant]
     Active Substance: GINKGO
     Indication: Product used for unknown indication
  15. MAGNESIUM [Concomitant]
     Active Substance: MAGNESIUM
     Indication: Product used for unknown indication
  16. GLUCOSAMINE + CHONDORITIN [Concomitant]
     Indication: Product used for unknown indication
  17. TESTOPEL [Concomitant]
     Active Substance: TESTOSTERONE
     Indication: Product used for unknown indication
  18. PROVIGIL [Concomitant]
     Active Substance: MODAFINIL
     Indication: Product used for unknown indication
  19. OYSTER SHELL [Concomitant]
     Active Substance: OSTREA EDULIS SHELL
     Indication: Product used for unknown indication
  20. PFIZER-BIONTECH COVID-19 VACCINE [Concomitant]
     Active Substance: TOZINAMERAN
     Indication: COVID-19 immunisation
     Route: 030

REACTIONS (8)
  - Osteoarthritis [Unknown]
  - Osteoarthritis [Recovered/Resolved]
  - Knee arthroplasty [Recovered/Resolved]
  - Arthralgia [Recovering/Resolving]
  - Rash [Recovering/Resolving]
  - Arthralgia [Unknown]
  - Therapeutic response shortened [Unknown]
  - Neck pain [Unknown]

NARRATIVE: CASE EVENT DATE: 20210101
